FAERS Safety Report 19168728 (Version 1)
Quarter: 2021Q2

REPORT INFORMATION
  Report Type: Spontaneous
  Country: GB (occurrence: GB)
  Receive Date: 20210422
  Receipt Date: 20210422
  Transmission Date: 20210717
  Serious: Yes (Hospitalization, Other)
  Sender: FDA-Public Use
  Company Number: GB-002147023-PHHY2010GB09660

PATIENT
  Age: 35 Year
  Sex: Male

DRUGS (3)
  1. CLOZAPINE MYLAN [Suspect]
     Active Substance: CLOZAPINE
     Indication: SCHIZOPHRENIA
     Dosage: 400 MILLIGRAM, QD
  2. QUETIAPINE. [Concomitant]
     Active Substance: QUETIAPINE
     Indication: SCHIZOPHRENIA
     Dosage: 200 MILLIGRAM, QD
  3. ZUCLOPENTHIXOL DECANOATE [Concomitant]
     Active Substance: ZUCLOPENTHIXOL DECANOATE
     Indication: SCHIZOPHRENIA
     Dosage: 25 MILLIGRAM, QD

REACTIONS (9)
  - Confusional state [Unknown]
  - Neutrophil count increased [Unknown]
  - Restlessness [Unknown]
  - Hyperhidrosis [Unknown]
  - Abnormal behaviour [Unknown]
  - Blood creatine phosphokinase increased [Recovered/Resolved]
  - Lack of spontaneous speech [Unknown]
  - Neuroleptic malignant syndrome [Recovered/Resolved]
  - Diabetes mellitus [Recovered/Resolved]
